FAERS Safety Report 8047925-6 (Version None)
Quarter: 2012Q1

REPORT INFORMATION
  Report Type: 
  Country: None (occurrence: None)
  Receive Date: 20120116
  Receipt Date: 20120103
  Transmission Date: 20120608
  Serious: Yes (Hospitalization)
  Sender: FDA-Public Use
  Company Number: CA-ABBOTT-12P-028-0890753-00

PATIENT
  Sex: Male

DRUGS (11)
  1. BETA BLOCKING AGENTS [Concomitant]
     Indication: PRODUCT USED FOR UNKNOWN INDICATION
  2. ANGIOTENSIN II RECEPTOR BLOCKERS [Concomitant]
     Indication: PRODUCT USED FOR UNKNOWN INDICATION
  3. HORMONE REPLACEMENT THERAPY [Concomitant]
     Indication: PRODUCT USED FOR UNKNOWN INDICATION
  4. DIURETICS [Concomitant]
     Indication: PRODUCT USED FOR UNKNOWN INDICATION
  5. NIASPAN [Suspect]
     Indication: ARTERIOSCLEROSIS
     Route: 048
     Dates: start: 20070308, end: 20110628
  6. SIMVASTATIN [Concomitant]
     Indication: DYSLIPIDAEMIA
  7. WARFARIN OR HEPARIN ANALOG [Concomitant]
     Indication: PRODUCT USED FOR UNKNOWN INDICATION
  8. CALCIUM CHANNEL BLOCKERS [Concomitant]
     Indication: PRODUCT USED FOR UNKNOWN INDICATION
  9. NIASPAN [Suspect]
     Indication: DYSLIPIDAEMIA
  10. SIMVASTATIN [Concomitant]
     Indication: ARTERIOSCLEROSIS
     Route: 048
     Dates: start: 20070308, end: 20110628
  11. ASPIRIN [Concomitant]
     Indication: PRODUCT USED FOR UNKNOWN INDICATION

REACTIONS (2)
  - FATIGUE [None]
  - ANAEMIA [None]
